FAERS Safety Report 17219845 (Version 3)
Quarter: 2020Q1

REPORT INFORMATION
  Report Type: Spontaneous
  Country: GB (occurrence: GB)
  Receive Date: 20191231
  Receipt Date: 20200317
  Transmission Date: 20200409
  Serious: Yes (Life-Threatening, Hospitalization, Disabling, Other)
  Sender: FDA-Public Use
  Company Number: GB-JNJFOC-20191243932

PATIENT
  Age: 33 Year
  Sex: Male
  Weight: 180 kg

DRUGS (1)
  1. TREVICTA [Suspect]
     Active Substance: PALIPERIDONE PALMITATE
     Indication: PSYCHOTIC BEHAVIOUR
     Route: 030
     Dates: start: 20191009

REACTIONS (2)
  - Malaise [Unknown]
  - HIV infection [Unknown]

NARRATIVE: CASE EVENT DATE: 20191206
